FAERS Safety Report 4759138-1 (Version None)
Quarter: 2005Q3

REPORT INFORMATION
  Report Type: 
  Country: None (occurrence: None)
  Receive Date: 20050831
  Receipt Date: 20050823
  Transmission Date: 20060218
  Serious: Yes (Death, Other)
  Sender: FDA-Public Use
  Company Number: 062-20785-05080249

PATIENT
  Age: 60 Year
  Sex: Male

DRUGS (6)
  1. THALIDOMIDE (THALIDOMIDE) (CAPSULES) [Suspect]
     Indication: MULTIPLE MYELOMA
     Dosage: 100 MG, DAILY, ORAL
     Route: 048
     Dates: start: 20030401
  2. BORTEZOMIB (BORTEZOMIB) (INJECTION) [Suspect]
     Indication: MULTIPLE MYELOMA
     Dosage: 1.3 MG/M2, 4 INJECTIONS WITHIN 11DAYS, INTRAVENOUS
     Route: 042
     Dates: start: 20030901
  3. DEXAMETHASONE [Suspect]
     Indication: MULTIPLE MYELOMA
     Dosage: 20 MG, ON DAYS OF INJECTION AND 1 DAY AFTER, UNKNOWN
     Dates: start: 20030401
  4. CYCLOPHOSPHAMIDE [Suspect]
     Indication: MULTIPLE MYELOMA
     Dates: start: 20030401
  5. ETOPOSIDE [Suspect]
     Indication: MULTIPLE MYELOMA
     Dates: start: 20030401
  6. BISPHOSPHONATE THERAPY (BISPHOSPHONATES) [Concomitant]

REACTIONS (4)
  - GENERAL PHYSICAL HEALTH DETERIORATION [None]
  - HYPERCALCAEMIA [None]
  - LEUKAEMIA PLASMACYTIC [None]
  - PANCYTOPENIA [None]
